FAERS Safety Report 8912729 (Version 2)
Quarter: 2013Q1

REPORT INFORMATION
  Report Type: Spontaneous
  Country: CN (occurrence: CN)
  Receive Date: 20121116
  Receipt Date: 20130108
  Transmission Date: 20140127
  Serious: Yes (Hospitalization, Other)
  Sender: FDA-Public Use
  Company Number: CN-PFIZER INC-2012284115

PATIENT
  Age: 24 Year
  Sex: Female

DRUGS (2)
  1. LINCOMYCIN HYDROCHLORIDE [Suspect]
     Indication: VOMITING
     Dosage: TWICE A DAY, TWO DAYS IN TOTAL
     Route: 030
  2. LINCOMYCIN HYDROCHLORIDE [Suspect]
     Indication: DIARRHOEA

REACTIONS (2)
  - Renal failure acute [Recovered/Resolved]
  - Haemodialysis [None]
